FAERS Safety Report 6680490-4 (Version None)
Quarter: 2010Q2

REPORT INFORMATION
  Report Type: 
  Country: None (occurrence: None)
  Receive Date: 20100414
  Receipt Date: 20100405
  Transmission Date: 20101027
  Serious: No
  Sender: FDA-Public Use
  Company Number: US-BIOGENIDEC-2010BI010873

PATIENT
  Age: 32 Year
  Sex: Female

DRUGS (1)
  1. TYSABRI [Suspect]
     Indication: MULTIPLE SCLEROSIS
     Route: 042
     Dates: start: 20080825

REACTIONS (5)
  - ARTHRALGIA [None]
  - CD4 LYMPHOCYTES DECREASED [None]
  - CHOLELITHIASIS [None]
  - INSOMNIA [None]
  - MUSCULOSKELETAL PAIN [None]
